FAERS Safety Report 16145196 (Version 1)
Quarter: 2019Q2

REPORT INFORMATION
  Report Type: Spontaneous
  Country: US (occurrence: US)
  Receive Date: 20190402
  Receipt Date: 20190402
  Transmission Date: 20190711
  Serious: No
  Sender: FDA-Public Use
  Company Number: US-CELGENEUS-USA-20190307846

PATIENT
  Age: 56 Year
  Sex: Female

DRUGS (4)
  1. OTEZLA [Suspect]
     Active Substance: APREMILAST
     Dosage: STARTER PACK (10MG, 20MG, 30MG)
     Route: 048
     Dates: start: 20190305
  2. OTEZLA [Suspect]
     Active Substance: APREMILAST
     Dosage: STARTER PACK (10MG, 20MG, 30MG)
     Route: 048
     Dates: start: 201903
  3. OTEZLA [Suspect]
     Active Substance: APREMILAST
     Indication: PSORIASIS
     Dosage: 60 MILLIGRAM
     Route: 048
     Dates: start: 20181128
  4. OTEZLA [Suspect]
     Active Substance: APREMILAST
     Dosage: 40 MILLIGRAM
     Route: 048
     Dates: start: 20190318

REACTIONS (2)
  - Incorrect dose administered [Unknown]
  - Back pain [Unknown]

NARRATIVE: CASE EVENT DATE: 20190317
